FAERS Safety Report 8188314-3 (Version None)
Quarter: 2012Q1

REPORT INFORMATION
  Report Type: 
  Country: None (occurrence: None)
  Receive Date: 20120306
  Receipt Date: 20120223
  Transmission Date: 20120608
  Serious: Yes (Hospitalization)
  Sender: FDA-Public Use
  Company Number: JP-ELI_LILLY_AND_COMPANY-JP201110004210

PATIENT
  Sex: Male

DRUGS (1)
  1. FORTEO [Suspect]
     Route: 058

REACTIONS (3)
  - INJECTION SITE HAEMATOMA [None]
  - ABDOMINAL DISCOMFORT [None]
  - CARDIAC DISORDER [None]
